FAERS Safety Report 17924979 (Version 1)
Quarter: 2020Q2

REPORT INFORMATION
  Report Type: Spontaneous
  Country: IN (occurrence: NL)
  Receive Date: 20200622
  Receipt Date: 20200622
  Transmission Date: 20200714
  Serious: Yes (Life-Threatening, Hospitalization, Other)
  Sender: FDA-Public Use
  Company Number: NL-AKRON, INC.-2086484

PATIENT
  Age: 62 Year
  Sex: Male

DRUGS (1)
  1. ADENOSINE INJECTION, USP [Suspect]
     Active Substance: ADENOSINE

REACTIONS (1)
  - Respiratory failure [Recovering/Resolving]
